FAERS Safety Report 6235067-1 (Version None)
Quarter: 2009Q2

REPORT INFORMATION
  Report Type: 
  Country: None (occurrence: None)
  Receive Date: 20090618
  Receipt Date: 20090609
  Transmission Date: 20091009
  Serious: No
  Sender: FDA-Public Use
  Company Number: PHEH2009US05981

PATIENT
  Sex: Male

DRUGS (10)
  1. TASIGNA [Suspect]
     Indication: CHRONIC MYELOID LEUKAEMIA
     Dosage: 400 MG, Q12H
     Route: 048
     Dates: start: 20080601
  2. LOVENOX [Concomitant]
  3. KETOROLAC TROMETHAMINE [Concomitant]
  4. FUROSEMIDE [Concomitant]
  5. EFFEXOR [Concomitant]
  6. DILAUDID [Concomitant]
  7. AMBIEN [Concomitant]
  8. TYLENOL (CAPLET) [Concomitant]
  9. TOPROL-XL [Concomitant]
  10. LYRICA [Concomitant]

REACTIONS (1)
  - MEDICATION ERROR [None]
